FAERS Safety Report 4672437-7 (Version None)
Quarter: 2005Q2

REPORT INFORMATION
  Report Type: 
  Country: None (occurrence: None)
  Receive Date: 20050524
  Receipt Date: 20031205
  Transmission Date: 20051028
  Serious: Yes (Other)
  Sender: FDA-Public Use
  Company Number: 200311471JP

PATIENT
  Age: 52 Year
  Sex: Female
  Weight: 40 kg

DRUGS (14)
  1. ARAVA [Suspect]
     Indication: RHEUMATOID ARTHRITIS
     Route: 048
     Dates: start: 20031008, end: 20040105
  2. RHEUMATREX [Suspect]
     Indication: RHEUMATOID ARTHRITIS
     Dosage: DOSE: 8MG/WEEK
     Route: 048
     Dates: start: 20031216, end: 20040323
  3. PREDONINE [Concomitant]
     Indication: RHEUMATOID ARTHRITIS
     Route: 048
  4. INTEBAN [Concomitant]
     Indication: RHEUMATOID ARTHRITIS
     Route: 054
     Dates: start: 20040106, end: 20031201
  5. BONALON [Concomitant]
     Indication: OSTEOPOROSIS
     Route: 048
     Dates: end: 20040323
  6. ALFAROL [Concomitant]
     Indication: OSTEOPOROSIS
     Route: 048
     Dates: end: 20040323
  7. GASTER [Concomitant]
     Indication: GASTRITIS
     Route: 048
     Dates: end: 20040323
  8. PROMAC /JPN/ [Concomitant]
     Indication: GASTRITIS
     Route: 048
     Dates: end: 20040323
  9. PERSANTIN [Concomitant]
     Indication: CARDIAC FAILURE
     Route: 048
     Dates: end: 20040323
  10. BAYASPIRIN [Concomitant]
     Indication: CARDIAC FAILURE
     Route: 048
  11. DAZEN [Concomitant]
     Indication: BRONCHITIS CHRONIC
     Route: 048
  12. NEUZYM [Concomitant]
     Indication: BRONCHITIS CHRONIC
     Route: 048
  13. PYDOXAL [Concomitant]
     Indication: NEUROPATHY PERIPHERAL
     Route: 048
  14. RHEUMATREX [Concomitant]
     Dosage: DOSE: 8MG/WEEK
     Route: 048
     Dates: start: 20031216, end: 20040323

REACTIONS (11)
  - ALANINE AMINOTRANSFERASE INCREASED [None]
  - ASPARTATE AMINOTRANSFERASE INCREASED [None]
  - ASTHENIA [None]
  - BLOOD LACTATE DEHYDROGENASE INCREASED [None]
  - DECREASED APPETITE [None]
  - HEADACHE [None]
  - HEPATIC FUNCTION ABNORMAL [None]
  - NAUSEA [None]
  - RASH [None]
  - SPUTUM DISCOLOURED [None]
  - UPPER RESPIRATORY TRACT INFECTION [None]
